FAERS Safety Report 15095269 (Version 1)
Quarter: 2018Q3

REPORT INFORMATION
  Report Type: Spontaneous
  Country: IL (occurrence: IL)
  Receive Date: 20180702
  Receipt Date: 20180702
  Transmission Date: 20181010
  Serious: Yes (Other)
  Sender: FDA-Public Use
  Company Number: IL-ROCHE-2147145

PATIENT
  Sex: Female

DRUGS (2)
  1. BENDAMUSTINE [Concomitant]
     Active Substance: BENDAMUSTINE
  2. GAZYVA [Suspect]
     Active Substance: OBINUTUZUMAB
     Indication: B-CELL LYMPHOMA
     Route: 065

REACTIONS (4)
  - Hypoxia [Recovered/Resolved]
  - Dyspnoea [Recovered/Resolved]
  - Pyrexia [Recovered/Resolved]
  - Pneumonitis [Recovered/Resolved]
